FAERS Safety Report 8842899 (Version 1)
Quarter: 2012Q4

REPORT INFORMATION
  Report Type: 
  Country: US (occurrence: US)
  Receive Date: 20121016
  Receipt Date: 20121016
  Transmission Date: 20130627
  Serious: Yes (Hospitalization)
  Sender: FDA-Public Use
  Company Number: US-WATSON-2012-17656

PATIENT
  Age: 20 Year
  Sex: Male

DRUGS (9)
  1. CLONAZEPAM (UNKNOWN) [Suspect]
     Indication: ABDOMINAL PAIN
     Dosage: snorted crushed tablets
     Route: 055
  2. CLONAZEPAM (UNKNOWN) [Suspect]
     Indication: DEPRESSED MOOD
  3. QUETIAPINE [Suspect]
     Indication: ABDOMINAL PAIN
     Dosage: 100 mg, snorted crushed tablets
     Route: 055
  4. QUETIAPINE [Suspect]
     Indication: DEPRESSED MOOD
  5. PERCOCET                           /00446701/ [Suspect]
     Indication: ABDOMINAL PAIN
     Dosage: snorted crushed tablets
     Route: 055
  6. PERCOCET                           /00446701/ [Suspect]
     Indication: DEPRESSED MOOD
  7. ESCITALOPRAM [Suspect]
     Indication: ABDOMINAL PAIN
     Dosage: 20 mg, snorted crushed tablets
     Route: 055
  8. ESCITALOPRAM [Suspect]
     Indication: DEPRESSED MOOD
  9. COCAINE [Suspect]
     Indication: SUBSTANCE USE
     Dosage: UNK
     Route: 055

REACTIONS (3)
  - Serotonin syndrome [Recovered/Resolved]
  - Intentional overdose [Not Recovered/Not Resolved]
  - Off label use [Not Recovered/Not Resolved]
